FAERS Safety Report 18103505 (Version 3)
Quarter: 2021Q2

REPORT INFORMATION
  Report Type: Spontaneous
  Country: US (occurrence: US)
  Receive Date: 20200803
  Receipt Date: 20210622
  Transmission Date: 20210717
  Serious: Yes (Other)
  Sender: FDA-Public Use
  Company Number: US-PFIZER INC-2020291372

PATIENT
  Age: 48 Year
  Sex: Female

DRUGS (2)
  1. FRAGMIN [Suspect]
     Active Substance: DALTEPARIN SODIUM
     Indication: IMMUNE THROMBOCYTOPENIA
     Dosage: 0.72 ML, 1X/DAY (18,000 ANTI?XA UNIT/0.72 ML, QUANTITY: 30 ML)
     Route: 058
  2. FRAGMIN [Suspect]
     Active Substance: DALTEPARIN SODIUM
     Indication: HYPERCOAGULATION

REACTIONS (2)
  - Cerebrovascular accident [Unknown]
  - Blindness [Unknown]
